FAERS Safety Report 20938220 (Version 2)
Quarter: 2022Q3

REPORT INFORMATION
  Report Type: Spontaneous
  Country: CA (occurrence: CA)
  Receive Date: 20220609
  Receipt Date: 20220706
  Transmission Date: 20221027
  Serious: Yes (Other)
  Sender: FDA-Public Use
  Company Number: CA-UNITED THERAPEUTICS-UNT-2022-012053

PATIENT
  Sex: Female

DRUGS (4)
  1. REMODULIN [Suspect]
     Active Substance: TREPROSTINIL
     Indication: Pulmonary arterial hypertension
     Dosage: UNK, CONTINUING
     Route: 041
     Dates: start: 20190123
  2. REMODULIN [Suspect]
     Active Substance: TREPROSTINIL
     Dosage: APPROX. 0.038 ?G/KG, CONTINUING
     Route: 041
  3. REMODULIN [Suspect]
     Active Substance: TREPROSTINIL
     Dosage: APPROX. 0.031 ?G/KG, CONTINUING
     Route: 041
  4. METHADONE HYDROCHLORIDE [Suspect]
     Active Substance: METHADONE HYDROCHLORIDE
     Indication: Pain
     Route: 065

REACTIONS (8)
  - Spinal compression fracture [Unknown]
  - Back pain [Recovering/Resolving]
  - Dyspepsia [Unknown]
  - Gastric disorder [Unknown]
  - Pain [Recovering/Resolving]
  - Dysphagia [Recovered/Resolved]
  - Somnolence [Recovered/Resolved]
  - Diarrhoea [Recovering/Resolving]
